FAERS Safety Report 11077764 (Version 1)
Quarter: 2015Q2

REPORT INFORMATION
  Report Type: Spontaneous
  Country: AR (occurrence: AR)
  Receive Date: 20150430
  Receipt Date: 20150430
  Transmission Date: 20150821
  Serious: Yes (Hospitalization)
  Sender: FDA-Public Use
  Company Number: AR-AMGEN-ARGSP2014097058

PATIENT
  Age: 74 Year
  Sex: Female

DRUGS (5)
  1. ACETYL [Concomitant]
     Dosage: 10 MG, 2X/WEEK
  2. ENBREL [Suspect]
     Active Substance: ETANERCEPT
     Indication: RHEUMATOID ARTHRITIS
     Dosage: 25 MG, 2X/WEEK
     Route: 065
     Dates: start: 20091102
  3. RANITIDINE [Concomitant]
     Active Substance: RANITIDINE\RANITIDINE HYDROCHLORIDE
     Dosage: 300 MG, 1X/DAY
  4. ALIDASE [Concomitant]
     Active Substance: NAPROXEN
     Dosage: 1 DF, DAILY
  5. DILATREND [Concomitant]
     Active Substance: CARVEDILOL
     Dosage: 2 UNK, DAILY

REACTIONS (6)
  - Dry mouth [Not Recovered/Not Resolved]
  - Mobility decreased [Not Recovered/Not Resolved]
  - Depression [Unknown]
  - Back pain [Not Recovered/Not Resolved]
  - Visual impairment [Not Recovered/Not Resolved]
  - Dehydration [Not Recovered/Not Resolved]

NARRATIVE: CASE EVENT DATE: 201411
